FAERS Safety Report 18169318 (Version 1)
Quarter: 2020Q3

REPORT INFORMATION
  Report Type: Spontaneous
  Country: US (occurrence: US)
  Receive Date: 20200819
  Receipt Date: 20200819
  Transmission Date: 20201103
  Serious: Yes (Other)
  Sender: FDA-Public Use
  Company Number: None

PATIENT
  Age: 26 Year
  Sex: Female
  Weight: 63 kg

DRUGS (1)
  1. REMICADE [Suspect]
     Active Substance: INFLIXIMAB
     Indication: CROHN^S DISEASE
     Dosage: ?          OTHER FREQUENCY:0, 2, 4 THEN Q8;?
     Route: 042
     Dates: start: 20200817, end: 20200817

REACTIONS (6)
  - Infusion related reaction [None]
  - Paraesthesia [None]
  - Vomiting [None]
  - Muscle spasms [None]
  - Tachycardia [None]
  - Hypoaesthesia [None]

NARRATIVE: CASE EVENT DATE: 20200817
